FAERS Safety Report 9247036 (Version 2)
Quarter: 2014Q1

REPORT INFORMATION
  Report Type: Report from Study
  Country: JP (occurrence: JP)
  Receive Date: 20130423
  Receipt Date: 20140305
  Transmission Date: 20141002
  Serious: Yes (Life-Threatening, Hospitalization, Other)
  Sender: FDA-Public Use
  Company Number: JP-ACTELION-A-JP2005-11268

PATIENT
  Age: 39 Year
  Sex: Female
  Weight: 46.8 kg

DRUGS (8)
  1. TRACLEER [Suspect]
     Indication: PULMONARY HYPERTENSION
     Dosage: 125 MG, BID
     Route: 048
     Dates: start: 20050806, end: 20051207
  2. TRACLEER [Suspect]
     Dosage: 62.5 MG, BID
     Route: 048
     Dates: start: 20050712, end: 20050805
  3. TRACLEER [Suspect]
     Dosage: 62.5 MG, BID
     Route: 048
     Dates: start: 20051208, end: 20051213
  4. TRACLEER [Suspect]
     Dosage: 62.5 MG, OD
     Route: 048
     Dates: start: 20061109
  5. BERAPROST SODIUM [Concomitant]
  6. WARFARIN POTASSIUM [Concomitant]
  7. AMLODIPINE [Concomitant]
  8. OXYGEN [Concomitant]

REACTIONS (4)
  - Aspartate aminotransferase increased [Recovered/Resolved]
  - Alanine aminotransferase increased [Recovered/Resolved]
  - Blood alkaline phosphatase increased [Recovered/Resolved]
  - Gamma-glutamyltransferase increased [Recovered/Resolved]
